FAERS Safety Report 25297481 (Version 1)
Quarter: 2025Q2

REPORT INFORMATION
  Report Type: Spontaneous
  Country: ES (occurrence: ES)
  Receive Date: 20250511
  Receipt Date: 20250511
  Transmission Date: 20250716
  Serious: Yes (Other)
  Sender: SANOFI AVENTIS
  Company Number: ES-SA-2025SA134296

PATIENT
  Age: 54 Year
  Sex: Male

DRUGS (9)
  1. LANTUS [Suspect]
     Active Substance: INSULIN GLARGINE
     Dosage: 10 IU AT LUNCH
     Dates: start: 202306
  2. LANTUS [Suspect]
     Active Substance: INSULIN GLARGINE
     Dosage: 52 IU, QD
  3. ATORVASTATIN [Concomitant]
     Active Substance: ATORVASTATIN
     Indication: Dyslipidaemia
     Dosage: 10 MG, QD
  4. METFORMIN\SITAGLIPTIN [Concomitant]
     Active Substance: METFORMIN\SITAGLIPTIN
  5. GLICLAZIDE [Concomitant]
     Active Substance: GLICLAZIDE
  6. SITAGLIPTIN [Concomitant]
     Active Substance: SITAGLIPTIN
     Dates: end: 202407
  7. APIDRA [Concomitant]
     Active Substance: INSULIN GLULISINE
     Dosage: 4-4-4, TID
     Dates: start: 202407
  8. APIDRA [Concomitant]
     Active Substance: INSULIN GLULISINE
     Dosage: 2-4-4
  9. APIDRA [Concomitant]
     Active Substance: INSULIN GLULISINE
     Dosage: 4-5-4

REACTIONS (6)
  - Colitis ulcerative [Unknown]
  - Inflammatory bowel disease [Unknown]
  - Diarrhoea [Unknown]
  - Glycosylated haemoglobin increased [Unknown]
  - Hyperglycaemia [Unknown]
  - Hypoglycaemia [Unknown]

NARRATIVE: CASE EVENT DATE: 20240701
